FAERS Safety Report 19936464 (Version 1)
Quarter: 2021Q4

REPORT INFORMATION
  Report Type: Spontaneous
  Country: US (occurrence: US)
  Receive Date: 20211008
  Receipt Date: 20211008
  Transmission Date: 20220303
  Serious: No
  Sender: FDA-Public Use
  Company Number: US-SPROUT PHARMACEUTICALS, INC.-2021SP000070

PATIENT
  Sex: Female

DRUGS (1)
  1. ADDYI [Suspect]
     Active Substance: FLIBANSERIN
     Indication: Product used for unknown indication
     Route: 048

REACTIONS (8)
  - Ingrown hair [Unknown]
  - Scab [Unknown]
  - Skin disorder [Unknown]
  - Hair growth abnormal [Unknown]
  - Skin ulcer [Unknown]
  - Skin haemorrhage [Unknown]
  - Skin swelling [Unknown]
  - Nail infection [Unknown]
